FAERS Safety Report 7506340-1 (Version None)
Quarter: 2011Q2

REPORT INFORMATION
  Report Type: 
  Country: None (occurrence: None)
  Receive Date: 20110526
  Receipt Date: 20100810
  Transmission Date: 20111010
  Serious: No
  Sender: FDA-Public Use
  Company Number: US-ABBOTT-10P-163-0663254-00

PATIENT
  Sex: Female
  Weight: 82.174 kg

DRUGS (3)
  1. ZEMPLAR [Suspect]
     Indication: NEPHROPATHY
     Dosage: 3 TIMES PER WEEK
     Dates: start: 20091201, end: 20100809
  2. SYNTHROID [Concomitant]
     Indication: HYPOTHYROIDISM
  3. ZEMPLAR [Suspect]
     Dates: start: 20100809

REACTIONS (2)
  - BLOOD PARATHYROID HORMONE INCREASED [None]
  - PARAESTHESIA [None]
